FAERS Safety Report 8123407-8 (Version None)
Quarter: 2012Q1

REPORT INFORMATION
  Report Type: 
  Country: None (occurrence: None)
  Receive Date: 20120208
  Receipt Date: 20120203
  Transmission Date: 20120608
  Serious: Yes (Other)
  Sender: FDA-Public Use
  Company Number: US-PFIZER INC-2012025772

PATIENT
  Sex: Female
  Weight: 65.76 kg

DRUGS (5)
  1. LIPITOR [Suspect]
     Indication: BLOOD CHOLESTEROL INCREASED
     Dosage: 80 MG, 1X/DAY
  2. NEURONTIN [Suspect]
     Dosage: 300MG, 2 CAPSULES, 3X/DAY
  3. ASPIRIN [Concomitant]
     Dosage: UNK
  4. ACTONEL [Concomitant]
     Dosage: UNK
  5. PLAVIX [Concomitant]
     Indication: TRANSIENT ISCHAEMIC ATTACK
     Dosage: 75 MG, DAILY

REACTIONS (2)
  - CATARACT [None]
  - SURGERY [None]
